FAERS Safety Report 6010842-7 (Version None)
Quarter: 2008Q4

REPORT INFORMATION
  Report Type: 
  Country: None (occurrence: None)
  Receive Date: 20081216
  Receipt Date: 20081201
  Transmission Date: 20090506
  Serious: Yes (Hospitalization)
  Sender: FDA-Public Use
  Company Number: KV200801096

PATIENT
  Age: 63 Year
  Sex: Male

DRUGS (10)
  1. ISOSORBIDE MONONITRATE [Suspect]
     Indication: DRUG USE FOR UNKNOWN INDICATION
     Dosage: ORAL
     Route: 048
  2. PLAVIX [Concomitant]
  3. INSULIN (INSULIN HUMAN) [Concomitant]
  4. GLUCOPHAGE [Concomitant]
  5. ATENOLOL [Concomitant]
  6. SYNTHROID [Concomitant]
  7. ZOCOR [Concomitant]
  8. FOLIC ACID [Concomitant]
  9. ASPIRIN [Concomitant]
  10. DIOVAN [Concomitant]

REACTIONS (4)
  - DIZZINESS [None]
  - HYPOTENSION [None]
  - PRODUCT QUALITY ISSUE [None]
  - VISION BLURRED [None]
